FAERS Safety Report 17447559 (Version 1)
Quarter: 2020Q1

REPORT INFORMATION
  Report Type: Spontaneous
  Country: HU (occurrence: HU)
  Receive Date: 20200221
  Receipt Date: 20200221
  Transmission Date: 20200409
  Serious: Yes (Life-Threatening, Hospitalization)
  Sender: FDA-Public Use
  Company Number: HU-B.I. PHARMACEUTICALS,INC./RIDGEFIELD-2020-BI-009917

PATIENT
  Age: 66 Year
  Sex: Female
  Weight: 70 kg

DRUGS (1)
  1. PRADAXA [Suspect]
     Active Substance: DABIGATRAN ETEXILATE MESYLATE
     Indication: ATRIAL FIBRILLATION
     Route: 048
     Dates: start: 2015, end: 20200217

REACTIONS (4)
  - Road traffic accident [Unknown]
  - Pelvic fracture [Not Recovered/Not Resolved]
  - Multiple injuries [Not Recovered/Not Resolved]
  - Splenic rupture [Not Recovered/Not Resolved]

NARRATIVE: CASE EVENT DATE: 20200217
